FAERS Safety Report 8497212 (Version 2)
Quarter: 2012Q4

REPORT INFORMATION
  Report Type: Report from Study
  Country: JP (occurrence: JP)
  Receive Date: 20120406
  Receipt Date: 20120919
  Transmission Date: 20130627
  Serious: Yes (Other)
  Sender: FDA-Public Use
  Company Number: JP-JNJFOC-20120315114

PATIENT
  Age: 27 Year
  Sex: Female
  Weight: 43 kg

DRUGS (9)
  1. REMICADE [Suspect]
     Indication: RHEUMATOID ARTHRITIS
     Route: 042
     Dates: start: 20100326, end: 20100507
  2. REMICADE [Suspect]
     Indication: RHEUMATOID ARTHRITIS
     Dosage: 13th dose of infliximab
     Route: 042
     Dates: start: 20100129
  3. REMICADE [Suspect]
     Indication: RHEUMATOID ARTHRITIS
     Dosage: 12th dose of infliximab
     Route: 042
     Dates: start: 20090925, end: 20091120
  4. REMICADE [Suspect]
     Indication: RHEUMATOID ARTHRITIS
     Route: 042
     Dates: start: 20090729
  5. REMICADE [Suspect]
     Indication: RHEUMATOID ARTHRITIS
     Route: 042
     Dates: start: 20080122
  6. HYPEN [Concomitant]
     Indication: RHEUMATOID ARTHRITIS
     Route: 048
     Dates: start: 20090925, end: 20100326
  7. FOLIAMIN [Concomitant]
     Indication: PROPHYLAXIS
     Route: 048
     Dates: start: 20090925, end: 20100326
  8. PREDNISOLONE [Concomitant]
     Route: 048
     Dates: start: 20091204, end: 20100326
  9. METHOTREXATE [Concomitant]
     Route: 048
     Dates: end: 20100326

REACTIONS (1)
  - Lupus-like syndrome [Recovered/Resolved]
